FAERS Safety Report 4396454-X (Version None)
Quarter: 2004Q2

REPORT INFORMATION
  Report Type: 
  Country: None (occurrence: None)
  Receive Date: 20040621
  Receipt Date: 20020807
  Transmission Date: 20050107
  Serious: Yes (Other)
  Sender: FDA-Public Use
  Company Number: USA-2002-0001881

PATIENT
  Age: 60 Year
  Sex: Female

DRUGS (15)
  1. OXYCONTIN [Suspect]
     Indication: PAIN
     Dosage: 40 MG, Q12H, ORAL
     Route: 048
     Dates: start: 19991122, end: 20000803
  2. OXYCODONE HCL [Suspect]
     Indication: PAIN
     Dosage: 5 MG, Q4- 6H, ORAL
     Route: 048
     Dates: start: 20000229
  3. KLONOPIN [Concomitant]
  4. TYLENOL [Concomitant]
  5. SKELAXIN [Concomitant]
  6. ATIVAN [Concomitant]
  7. PHENERGAN ^SPECIA^ [Concomitant]
  8. DESYREL [Concomitant]
  9. EFFEXOR [Concomitant]
  10. PREVACID [Concomitant]
  11. TIGAN [Concomitant]
  12. BISACODYL [Concomitant]
  13. VIOXX [Concomitant]
  14. TESSALON [Concomitant]
  15. CECLOR [Concomitant]

REACTIONS (9)
  - ABDOMINAL PAIN UPPER [None]
  - ANXIETY [None]
  - DEHYDRATION [None]
  - DEPRESSION [None]
  - DRUG DEPENDENCE [None]
  - DRUG WITHDRAWAL SYNDROME [None]
  - FALL [None]
  - HEADACHE [None]
  - PAIN [None]
